FAERS Safety Report 9390366 (Version 2)
Quarter: 2013Q3

REPORT INFORMATION
  Report Type: Spontaneous
  Country: JP (occurrence: JP)
  Receive Date: 20130709
  Receipt Date: 20130808
  Transmission Date: 20140515
  Serious: Yes (Other)
  Sender: FDA-Public Use
  Company Number: JP-BRISTOL-MYERS SQUIBB COMPANY-19084029

PATIENT
  Age: 60 Year
  Sex: 0

DRUGS (3)
  1. METGLUCO [Suspect]
     Indication: TYPE 2 DIABETES MELLITUS
     Dosage: UNK-UNK:30DAYS?750MG:UNK-UNK:14DAYS
     Route: 048
  2. ATORVASTATIN CALCIUM [Suspect]
     Route: 048
  3. SITAGLIPTIN PHOSPHATE [Concomitant]
     Route: 048

REACTIONS (1)
  - Rhabdomyolysis [Recovered/Resolved]
